FAERS Safety Report 16918073 (Version 2)
Quarter: 2019Q4

REPORT INFORMATION
  Report Type: Spontaneous
  Country: US (occurrence: US)
  Receive Date: 20191015
  Receipt Date: 20191029
  Transmission Date: 20200122
  Serious: Yes (Hospitalization)
  Sender: FDA-Public Use
  Company Number: US-AKORN PHARMACEUTICALS-2019AKN02133

PATIENT
  Age: 44 Year
  Sex: Female
  Weight: 105.22 kg

DRUGS (5)
  1. MYORISAN [Suspect]
     Active Substance: ISOTRETINOIN
     Indication: HIDRADENITIS
     Dosage: 40 MG, 2X/DAY + 10 MG 1X/DAY FOR A TOTAL DOSE OF 90 MG DAILY
     Dates: start: 20190918, end: 2019
  2. QUETIAPINE. [Concomitant]
     Active Substance: QUETIAPINE
  3. MYORISAN [Suspect]
     Active Substance: ISOTRETINOIN
     Indication: HIDRADENITIS
     Dosage: 10 MG, 1X/DAY + 40 MG 2X/DAY FOR A TOTAL DOSE OF 90 MG DAILY
     Dates: start: 20190918, end: 2019
  4. ZYRTEC [Concomitant]
     Active Substance: CETIRIZINE HYDROCHLORIDE
  5. YAZ OCP [Concomitant]

REACTIONS (7)
  - Respiratory distress [Unknown]
  - Skin discolouration [Unknown]
  - Rash [Unknown]
  - Off label use [Recovered/Resolved]
  - Treatment noncompliance [Recovered/Resolved]
  - Headache [Unknown]
  - Dry skin [Unknown]

NARRATIVE: CASE EVENT DATE: 2019
